FAERS Safety Report 9999548 (Version 1)
Quarter: 2014Q1

REPORT INFORMATION
  Report Type: Spontaneous
  Country: DE (occurrence: DE)
  Receive Date: 20140312
  Receipt Date: 20140312
  Transmission Date: 20141002
  Serious: Yes (Other)
  Sender: FDA-Public Use
  Company Number: DE-JNJFOC-20140304962

PATIENT
  Age: 23 Year
  Sex: Female

DRUGS (4)
  1. REMICADE [Suspect]
     Indication: CROHN^S DISEASE
     Dosage: 1 TRIMESTER, 0-30 GESTATIONAL WEEK
     Route: 042
  2. AZATHIOPRINE [Suspect]
     Indication: CROHN^S DISEASE
     Dosage: 1 TRIMESTER, 0-37 GESTATIONAL WEEK
     Route: 048
     Dates: start: 20120909, end: 20130725
  3. PREDNISOLONE [Suspect]
     Indication: CROHN^S DISEASE
     Dosage: 1 TRIMESTER, 0- 2.3 GESTATIONAL WEEK
     Route: 048
     Dates: start: 20121108, end: 20121125
  4. MULTIVITAMINS [Concomitant]
     Indication: PROPHYLAXIS OF NEURAL TUBE DEFECT
     Dosage: 1 TRIMESTER, 5.2-35.4 GESTATIONAL WEEK
     Route: 048

REACTIONS (4)
  - Meconium in amniotic fluid [Unknown]
  - Foetal heart rate deceleration abnormality [Unknown]
  - Pre-eclampsia [Unknown]
  - Exposure during pregnancy [Recovered/Resolved]
